FAERS Safety Report 6552883-7 (Version None)
Quarter: 2010Q1

REPORT INFORMATION
  Report Type: 
  Country: None (occurrence: None)
  Receive Date: 20100122
  Receipt Date: 20100111
  Transmission Date: 20100710
  Serious: Yes (Other)
  Sender: FDA-Public Use
  Company Number: 340001L10CHN

PATIENT
  Age: 28 Year
  Sex: Female

DRUGS (3)
  1. OVIDREL [Suspect]
     Indication: INFERTILITY
     Dosage: 6500 IU
  2. PUREGON (FOLLITROPIN BETA) [Concomitant]
  3. P IN OIL (PROGESTERONE) [Concomitant]

REACTIONS (2)
  - MULTIPLE PREGNANCY [None]
  - SELECTIVE ABORTION [None]
